FAERS Safety Report 5586801-5 (Version None)
Quarter: 2008Q1

REPORT INFORMATION
  Report Type: 
  Country: None (occurrence: None)
  Receive Date: 20080110
  Receipt Date: 20080102
  Transmission Date: 20080703
  Serious: Yes (Death, Hospitalization)
  Sender: FDA-Public Use
  Company Number: IT-AMGEN-UK258705

PATIENT
  Sex: Female

DRUGS (3)
  1. PANITUMUMAB [Suspect]
     Indication: SQUAMOUS CELL CARCINOMA
     Route: 042
     Dates: start: 20071213
  2. CISPLATIN [Suspect]
  3. FLUOROURACIL [Suspect]

REACTIONS (9)
  - DIARRHOEA [None]
  - FEBRILE NEUTROPENIA [None]
  - HYPOCALCAEMIA [None]
  - HYPOKALAEMIA [None]
  - HYPONATRAEMIA [None]
  - NEUTROPENIC SEPSIS [None]
  - PANCYTOPENIA [None]
  - STOMATITIS [None]
  - THROMBOCYTOPENIA [None]
